FAERS Safety Report 16900987 (Version 3)
Quarter: 2020Q1

REPORT INFORMATION
  Report Type: Spontaneous
  Country: US (occurrence: US)
  Receive Date: 20191009
  Receipt Date: 20200117
  Transmission Date: 20200409
  Serious: No
  Sender: FDA-Public Use
  Company Number: US-ALKERMES INC.-ALK-2019-003317

PATIENT
  Age: 46 Year
  Sex: Female

DRUGS (1)
  1. ARISTADA [Suspect]
     Active Substance: ARIPIPRAZOLE LAUROXIL
     Indication: BIPOLAR DISORDER
     Dosage: 1064 MG, Q2MO
     Route: 030
     Dates: start: 20171025

REACTIONS (5)
  - Off label use [Not Recovered/Not Resolved]
  - Crying [Unknown]
  - Bipolar disorder [Unknown]
  - Anger [Unknown]
  - Impaired work ability [Unknown]

NARRATIVE: CASE EVENT DATE: 20171025
